FAERS Safety Report 7418671-4 (Version None)
Quarter: 2011Q2

REPORT INFORMATION
  Report Type: 
  Country: None (occurrence: None)
  Receive Date: 20110415
  Receipt Date: 20110316
  Transmission Date: 20111010
  Serious: No
  Sender: FDA-Public Use
  Company Number: US-BAYER-2011-026177

PATIENT
  Age: 3 Year
  Sex: Male
  Weight: 19 kg

DRUGS (1)
  1. ALEVE (CAPLET) [Suspect]
     Indication: ACCIDENTAL DRUG INTAKE BY CHILD
     Dosage: 220 MG, ONCE
     Route: 048
     Dates: start: 20110316

REACTIONS (1)
  - NO ADVERSE EVENT [None]
